FAERS Safety Report 5792988-1 (Version None)
Quarter: 2008Q2

REPORT INFORMATION
  Report Type: 
  Country: None (occurrence: None)
  Receive Date: 20080627
  Receipt Date: 20080612
  Transmission Date: 20081010
  Serious: Yes (Hospitalization)
  Sender: FDA-Public Use
  Company Number: PHHY2008SG10484

PATIENT
  Age: 23 Year
  Sex: Female

DRUGS (4)
  1. TEGRETOL [Suspect]
     Indication: CONVULSION
     Dosage: 400 MG, UNK
     Route: 048
     Dates: start: 19950715
  2. AZATHIOPRINE [Concomitant]
     Route: 048
  3. CAPTOPRIL [Concomitant]
     Route: 048
  4. PREDNISOLONE [Concomitant]
     Route: 048

REACTIONS (3)
  - OEDEMA PERIPHERAL [None]
  - PERIORBITAL OEDEMA [None]
  - RASH GENERALISED [None]
